FAERS Safety Report 4903347-5 (Version None)
Quarter: 2006Q1

REPORT INFORMATION
  Report Type: 
  Country: None (occurrence: None)
  Receive Date: 20060206
  Receipt Date: 20060206
  Transmission Date: 20060701
  Serious: Yes (Hospitalization)
  Sender: FDA-Public Use
  Company Number: None

PATIENT
  Age: 68 Year
  Sex: Male
  Weight: 53.5244 kg

DRUGS (2)
  1. OMEPRAZOLE [Suspect]
     Dosage: 20MG PO DAILY
     Route: 048
     Dates: start: 20050914, end: 20051018
  2. ACETAMINOPHEN 300 CODEINE 30 MG [Suspect]
     Indication: PAIN
     Dosage: 300/30 PO Q6H
     Route: 048
     Dates: start: 20050919, end: 20051018

REACTIONS (2)
  - AGITATION [None]
  - CONFUSIONAL STATE [None]
